FAERS Safety Report 15916270 (Version 1)
Quarter: 2019Q1

REPORT INFORMATION
  Report Type: Spontaneous
  Country: US (occurrence: US)
  Receive Date: 20190114
  Receipt Date: 20190114
  Transmission Date: 20190417
  Serious: Yes (Hospitalization)
  Sender: FDA-Public Use
  Company Number: None

PATIENT
  Age: 11 Month
  Sex: Female
  Weight: 7.48 kg

DRUGS (3)
  1. ZINECARD [Suspect]
     Active Substance: DEXRAZOXANE HYDROCHLORIDE
     Dates: end: 20180713
  2. DOXORUBICIN HYDROCHLORIDE. [Suspect]
     Active Substance: DOXORUBICIN HYDROCHLORIDE
     Dates: end: 20180713
  3. CISPLATIN. [Suspect]
     Active Substance: CISPLATIN
     Dates: end: 20180719

REACTIONS (14)
  - Dehydration [None]
  - Fatigue [None]
  - Pyrexia [None]
  - Weight decreased [None]
  - Drug ineffective [None]
  - Haemoglobin decreased [None]
  - Platelet count decreased [None]
  - Urine output decreased [None]
  - Neutrophil count decreased [None]
  - Pain [None]
  - Diarrhoea [None]
  - Vomiting [None]
  - Neutropenia [None]
  - Decreased appetite [None]

NARRATIVE: CASE EVENT DATE: 20180722
